FAERS Safety Report 4993061-2 (Version None)
Quarter: 2006Q1

REPORT INFORMATION
  Report Type: 
  Country: None (occurrence: None)
  Receive Date: 20060313
  Receipt Date: 20051219
  Transmission Date: 20060701
  Serious: No
  Sender: FDA-Public Use
  Company Number: 2005-BP-21583BP

PATIENT
  Sex: Male

DRUGS (5)
  1. SPIRIVA [Suspect]
     Indication: ASTHMA
     Dosage: 18 MCG (18 MCG) IH
     Route: 055
     Dates: start: 20051129
  2. SPIRIVA [Suspect]
     Indication: EMPHYSEMA
     Dosage: 18 MCG (18 MCG) IH
     Route: 055
     Dates: start: 20051129
  3. FORADIL [Concomitant]
  4. COMBIVENT (COMBIVENT /01261001/ ) [Concomitant]
  5. PULMICORT [Concomitant]

REACTIONS (2)
  - DIARRHOEA [None]
  - DYSPNOEA [None]
